FAERS Safety Report 6886863-9 (Version None)
Quarter: 2010Q3

REPORT INFORMATION
  Report Type: 
  Country: None (occurrence: None)
  Receive Date: 20100729
  Receipt Date: 20100729
  Transmission Date: 20110219
  Serious: Yes (Life-Threatening)
  Sender: FDA-Public Use
  Company Number: None

PATIENT
  Sex: Male
  Weight: 95.2554 kg

DRUGS (1)
  1. OXICARBENZAPIN 300 MG [Suspect]
     Dosage: 2 PER DAY 2 TIMES DAILY ORAL
     Route: 048

REACTIONS (5)
  - BALANCE DISORDER [None]
  - CONFUSIONAL STATE [None]
  - DYSARTHRIA [None]
  - LETHARGY [None]
  - LOSS OF CONSCIOUSNESS [None]
